FAERS Safety Report 21263829 (Version 1)
Quarter: 2022Q3

REPORT INFORMATION
  Report Type: Report from Study
  Country: IE (occurrence: IE)
  Receive Date: 20220829
  Receipt Date: 20220829
  Transmission Date: 20221027
  Serious: No
  Sender: FDA-Public Use
  Company Number: IE-FEDR-MF-002-7501002-20201201-0002SG

PATIENT
  Age: 71 Year
  Sex: Male
  Weight: 96 kg

DRUGS (15)
  1. ASPIRIN [Concomitant]
     Active Substance: ASPIRIN
     Indication: Prophylaxis
     Dosage: 75 MG X 1 X 1 DAYS
     Route: 048
     Dates: start: 2014
  2. ATORVASTATIN [Concomitant]
     Active Substance: ATORVASTATIN
     Indication: Blood cholesterol increased
     Dosage: 20 MG X 1 X 24 HOURS
     Route: 048
     Dates: start: 2014, end: 20201019
  3. CANDESARTAN [Concomitant]
     Active Substance: CANDESARTAN
     Indication: Vertigo
     Dosage: 12 MG X 1 X 24 HOURS
     Route: 048
     Dates: start: 202002
  4. COVERSYL ARGENINE [Concomitant]
     Indication: Hypertension
     Dosage: 6 MG X 1 X 24 HOURS
     Route: 048
     Dates: start: 2018
  5. ESOMEPRAZOLE [Concomitant]
     Active Substance: ESOMEPRAZOLE
     Indication: Barrett^s oesophagus
     Dosage: 40 MG X 1 X 24 HOURS
     Route: 048
     Dates: start: 2018, end: 20201019
  6. FOLIC ACID [Concomitant]
     Active Substance: FOLIC ACID
     Indication: Vitamin supplementation
     Dosage: 5 MG X 1 X 24 HOURS
     Route: 048
     Dates: start: 2018
  7. FUROSEMIDE [Concomitant]
     Active Substance: FUROSEMIDE
     Indication: Oedema peripheral
     Dosage: 20 MG X 1 X 24 HOURS
     Route: 048
     Dates: start: 2019
  8. INSPRA [Concomitant]
     Active Substance: EPLERENONE
     Indication: Hypertension
     Dosage: 25 MG X 1 X 1 DAYS
     Route: 048
     Dates: start: 2018, end: 20201102
  9. ONDANESTRON [Concomitant]
     Indication: Product used for unknown indication
     Dosage: 4 MG X 1 X 1 DAYS
     Route: 048
     Dates: start: 20201112
  10. PANTOPRAZOLE [Concomitant]
     Active Substance: PANTOPRAZOLE
     Indication: Prophylaxis
     Dosage: 40 MG X 1 X 1 DAYS
     Route: 048
     Dates: start: 20201020
  11. ROSUVASTATIN [Concomitant]
     Active Substance: ROSUVASTATIN
     Indication: Blood cholesterol increased
     Dosage: 20 MG X 1 X 1 DAYS
     Route: 048
     Dates: start: 20201020
  12. SENNA [Concomitant]
     Active Substance: SENNA LEAF\SENNOSIDES\SENNOSIDES A AND B
     Indication: Constipation prophylaxis
     Dosage: 2 TABLET X 1 X 1 DAYS
     Route: 048
     Dates: start: 20201027
  13. SPIRILONACTONE [Concomitant]
     Indication: Hypertension
     Dosage: 50 MG X 1 X 1 DAYS
     Route: 048
     Dates: start: 20201103
  14. SPIRILONACTONE [Concomitant]
     Route: 048
  15. SPIRONOLACTONE [Concomitant]
     Active Substance: SPIRONOLACTONE
     Indication: Hypertension
     Dosage: 25 MG X 1 X 1 DAYS
     Route: 048
     Dates: start: 20201125

REACTIONS (1)
  - Vitamin B1 decreased [Recovered/Resolved]
